FAERS Safety Report 5800562-3 (Version None)
Quarter: 2008Q3

REPORT INFORMATION
  Report Type: 
  Country: None (occurrence: None)
  Receive Date: 20080701
  Receipt Date: 20080618
  Transmission Date: 20090109
  Serious: Yes (Hospitalization)
  Sender: FDA-Public Use
  Company Number: 100#08#2008-03267

PATIENT
  Age: 46 Year
  Sex: Female

DRUGS (2)
  1. HYDROXYCARBAMIDE (HYDROXYCARBAMIDE) [Suspect]
     Indication: ERYTHROMELALGIA
     Dosage: 500 MG, BD,
  2. HYDROXYZINE EMBONATE (HYDROXYZINE EMBONATE) [Concomitant]

REACTIONS (2)
  - HEPATITIS [None]
  - PYREXIA [None]
